FAERS Safety Report 7216856-3 (Version None)
Quarter: 2011Q1

REPORT INFORMATION
  Report Type: 
  Country: None (occurrence: None)
  Receive Date: 20110104
  Receipt Date: 20110104
  Transmission Date: 20110831
  Serious: No
  Sender: FDA-Public Use
  Company Number: None

PATIENT
  Sex: Female
  Weight: 74.3899 kg

DRUGS (1)
  1. SIMVASTATIN [Suspect]
     Indication: ARTERIOSCLEROSIS
     Dosage: ONE A DAY 10MG  ONE A DAY PO
     Route: 048
     Dates: start: 20101215, end: 20101231

REACTIONS (1)
  - POSTMENOPAUSAL HAEMORRHAGE [None]
